FAERS Safety Report 25022525 (Version 1)
Quarter: 2025Q1

REPORT INFORMATION
  Report Type: Spontaneous
  Country: US (occurrence: US)
  Receive Date: 20250228
  Receipt Date: 20250228
  Transmission Date: 20250408
  Serious: Yes (Other)
  Sender: EMCURE PHARMACEUTICALS LTD
  Company Number: US-AVET LIFESCIENCES LTD-2025-AVET-000055

PATIENT

DRUGS (10)
  1. METFORMIN [Suspect]
     Active Substance: METFORMIN HYDROCHLORIDE
     Indication: Glucose tolerance impaired
     Dosage: 1500 MILLIGRAM, 1 DOSE PER 1D
     Route: 065
  2. OMEGA-3 FATTY ACIDS [Concomitant]
     Active Substance: OMEGA-3 FATTY ACIDS
     Indication: Familial hypertriglyceridaemia
     Dosage: 3 GRAM, 1 DOSE PER 1D
     Route: 065
  3. OMEGA-3 FATTY ACIDS [Concomitant]
     Active Substance: OMEGA-3 FATTY ACIDS
     Dosage: 2 GRAM, 1 DOSE PER 1D
     Route: 065
  4. FENOFIBRATE [Concomitant]
     Active Substance: FENOFIBRATE
     Indication: Familial hypertriglyceridaemia
     Route: 065
  5. FENOFIBRATE [Concomitant]
     Active Substance: FENOFIBRATE
     Dosage: 2 GRAM, 1 DOSE PER 1D
     Route: 065
  6. INSULIN HUMAN [Concomitant]
     Active Substance: INSULIN HUMAN
     Indication: Diabetes mellitus
     Dosage: 20 UNIT, 1 DOSE PER 1D
     Route: 065
  7. INSULIN HUMAN [Concomitant]
     Active Substance: INSULIN HUMAN
     Dosage: 26 UNIT, 1 DOSE PER 1D
     Route: 065
  8. NIACIN [Concomitant]
     Active Substance: NIACIN
     Indication: Pancreatitis
     Dosage: 500 MILLIGRAM, 1 DOSE PER 1D
     Route: 065
  9. NIACIN [Concomitant]
     Active Substance: NIACIN
     Dosage: 1 GRAM, 1 DOSE PER 1D
     Route: 065
  10. NIACIN [Concomitant]
     Active Substance: NIACIN
     Dosage: 2000 MILLIGRAM, 1 DOSE PER 1D
     Route: 065

REACTIONS (4)
  - Autism spectrum disorder [Unknown]
  - Speech disorder developmental [Unknown]
  - Motor developmental delay [Unknown]
  - Foetal exposure during pregnancy [Unknown]
